FAERS Safety Report 8035162 (Version 14)
Quarter: 2013Q1

REPORT INFORMATION
  Report Type: Report from Study
  Country: HU (occurrence: HU)
  Receive Date: 20110714
  Receipt Date: 20130129
  Transmission Date: 20140127
  Serious: Yes (Hospitalization)
  Sender: FDA-Public Use
  Company Number: HU-ROCHE-789125

PATIENT
  Age: 29 Year
  Sex: Female
  Weight: 60 kg

DRUGS (3)
  1. TRASTUZUMAB [Suspect]
     Indication: BREAST CANCER
     Dosage: FORM: VIALSDATE OFLAST DOSE PRIOR TO SAE: 13 JAN 2011
     Route: 042
     Dates: start: 20100913, end: 20110707
  2. CARBOPLATIN [Suspect]
     Indication: BREAST CANCER
     Dosage: DOSE: 6 AUC, TOTAL DOSE: 760 MG,?DATE OFLAST DOSE PRIOR TO SAE: 28 DEC  2010
     Route: 042
  3. DOCETAXEL [Suspect]
     Indication: BREAST CANCER
     Dosage: TOTAL DOSE: 130 MG, FORM: VIAL,?DATE OF LAST DOSE PRIOR TO SAE: 28 DEC  2010
     Route: 042

REACTIONS (1)
  - Myocardial infarction [Recovered/Resolved]
